FAERS Safety Report 6662342-9 (Version None)
Quarter: 2010Q1

REPORT INFORMATION
  Report Type: 
  Country: None (occurrence: None)
  Receive Date: 20100331
  Receipt Date: 20090424
  Transmission Date: 20100710
  Serious: No
  Sender: FDA-Public Use
  Company Number: US-ABBOTT-08P-163-0479384-00

PATIENT
  Sex: Female
  Weight: 74.91 kg

DRUGS (6)
  1. LUPRON DEPOT [Suspect]
     Indication: UTERINE LEIOMYOMA
     Route: 030
     Dates: start: 20070601, end: 20070901
  2. LUPRON DEPOT [Suspect]
     Indication: PROPHYLAXIS
     Route: 030
     Dates: start: 20080916
  3. LUPRON DEPOT [Suspect]
     Indication: UTERINE HAEMORRHAGE
  4. LUPRON DEPOT [Suspect]
     Indication: HYSTERECTOMY
  5. METFORMIN (GLUCOPHAGE) [Concomitant]
     Indication: INSULIN RESISTANCE
     Route: 048
     Dates: start: 20080601
  6. BIO-IDENTICAL PROGESTERONE [Concomitant]
     Indication: HORMONE REPLACEMENT THERAPY
     Route: 048

REACTIONS (2)
  - DIARRHOEA [None]
  - DRUG INEFFECTIVE [None]
